FAERS Safety Report 11829819 (Version 1)
Quarter: 2015Q4

REPORT INFORMATION
  Report Type: Spontaneous
  Country: US (occurrence: US)
  Receive Date: 20151212
  Receipt Date: 20151212
  Transmission Date: 20160305
  Serious: No
  Sender: FDA-Public Use
  Company Number: US-BAUSCH-BL-2015-014828

PATIENT
  Sex: Male

DRUGS (2)
  1. FLUOROURACIL CREAM 5 % [Suspect]
     Active Substance: FLUOROURACIL
     Indication: SKIN CANCER
     Dates: end: 20150306
  2. FLUOROURACIL CREAM 5 % [Suspect]
     Active Substance: FLUOROURACIL

REACTIONS (2)
  - Pruritus [Not Recovered/Not Resolved]
  - Application site dryness [Not Recovered/Not Resolved]
